FAERS Safety Report 10191800 (Version 2)
Quarter: 2014Q3

REPORT INFORMATION
  Report Type: Spontaneous
  Country: CA (occurrence: CA)
  Receive Date: 20140523
  Receipt Date: 20140702
  Transmission Date: 20150326
  Serious: Yes (Hospitalization)
  Sender: FDA-Public Use
  Company Number: CA-SA-2014SA062244

PATIENT
  Age: 73 Year
  Sex: Male
  Weight: 73 kg

DRUGS (15)
  1. CIPROFLOXACIN. [Concomitant]
     Active Substance: CIPROFLOXACIN
     Route: 048
  2. CLOPIDOGREL [Concomitant]
     Active Substance: CLOPIDOGREL BISULFATE
     Route: 048
  3. VOREN [Concomitant]
     Active Substance: DICLOFENAC
  4. SENNA ALEXANDRINA DRY EXTRACT/SENNA ALEXANDRINA FRUIT EXTRACT [Concomitant]
     Route: 048
  5. DEXAMETHASONE. [Concomitant]
     Active Substance: DEXAMETHASONE
     Route: 042
  6. ISOSORBIDE MONONITRATE. [Concomitant]
     Active Substance: ISOSORBIDE MONONITRATE
     Route: 048
  7. ELOXATIN [Suspect]
     Active Substance: OXALIPLATIN
     Indication: METASTATIC CARCINOMA OF THE BLADDER
     Dosage: FREQUENCY -EVERY 2 WEEK
     Route: 042
  8. DILAUDID [Concomitant]
     Active Substance: HYDROMORPHONE HYDROCHLORIDE
     Route: 048
  9. FLUOROURACIL. [Concomitant]
     Active Substance: FLUOROURACIL
     Route: 042
  10. GRANISETRON [Concomitant]
     Active Substance: GRANISETRON
     Route: 042
  11. ASA [Concomitant]
     Active Substance: ASPIRIN
     Route: 048
  12. SIMVASTATIN. [Concomitant]
     Active Substance: SIMVASTATIN
     Route: 048
  13. COLACE [Concomitant]
     Active Substance: DOCUSATE SODIUM
     Route: 048
  14. METOPROLOL [Concomitant]
     Active Substance: METOPROLOL
     Route: 048
  15. FOLINIC ACID [Concomitant]
     Active Substance: LEUCOVORIN
     Route: 042

REACTIONS (3)
  - Angina pectoris [Recovered/Resolved]
  - Electrocardiogram change [Recovered/Resolved]
  - Chest discomfort [Recovered/Resolved]

NARRATIVE: CASE EVENT DATE: 20131002
